FAERS Safety Report 8759169 (Version 5)
Quarter: 2014Q3

REPORT INFORMATION
  Report Type: Spontaneous
  Country: US (occurrence: US)
  Receive Date: 20120829
  Receipt Date: 20140806
  Transmission Date: 20150326
  Serious: Yes (Life-Threatening, Hospitalization, Disabling, Other)
  Sender: FDA-Public Use
  Company Number: US-009507513-1208USA010698

PATIENT
  Sex: Female

DRUGS (1)
  1. NUVARING [Suspect]
     Active Substance: ETHINYL ESTRADIOL\ETONOGESTREL
     Indication: CONTRACEPTION
     Dosage: 0.120 MG/DAY OF ETONOGESTREL AND 0.015 MG/DAY OF ETHINYL ESTRADIOL/21 DAYS
     Route: 067
     Dates: start: 201001, end: 20120718

REACTIONS (14)
  - Dyspnoea [Recovering/Resolving]
  - Gait disturbance [Recovering/Resolving]
  - Hypertension [Unknown]
  - Pulmonary embolism [Recovering/Resolving]
  - Cholelithiasis [Unknown]
  - Urinary tract infection [Unknown]
  - Pruritus [Unknown]
  - Pain in extremity [Recovering/Resolving]
  - Menstruation irregular [Unknown]
  - Pulmonary embolism [Unknown]
  - Hypoalbuminaemia [Unknown]
  - Normochromic normocytic anaemia [Unknown]
  - Deep vein thrombosis [Unknown]
  - Deep vein thrombosis [Unknown]

NARRATIVE: CASE EVENT DATE: 20120319
